FAERS Safety Report 6704386-4 (Version None)
Quarter: 2010Q2

REPORT INFORMATION
  Report Type: 
  Country: None (occurrence: None)
  Receive Date: 20100430
  Receipt Date: 20100421
  Transmission Date: 20101027
  Serious: Yes (Hospitalization)
  Sender: FDA-Public Use
  Company Number: JP-ELI_LILLY_AND_COMPANY-JP201004008248

PATIENT
  Age: 73 Year
  Sex: Female

DRUGS (7)
  1. PEMETREXED [Suspect]
     Indication: NON-SMALL CELL LUNG CANCER
     Dosage: 500 MG/M2, OTHER
     Route: 042
     Dates: start: 20100303, end: 20100303
  2. PEMETREXED [Suspect]
     Route: 042
     Dates: start: 20100402
  3. PARAPLATIN [Concomitant]
     Indication: NON-SMALL CELL LUNG CANCER
     Route: 042
     Dates: start: 20100303, end: 20100303
  4. PARAPLATIN [Concomitant]
     Route: 042
     Dates: start: 20100402
  5. PANVITAN [Concomitant]
     Dosage: 1 G, DAILY (1/D)
     Route: 048
     Dates: start: 20100224
  6. METHYCOBAL [Concomitant]
     Dosage: 1 MG, UNK
     Route: 030
     Dates: start: 20100224
  7. CODEINE SULFATE [Concomitant]
     Dosage: UNK, AS NEEDED
     Route: 048
     Dates: start: 20100402

REACTIONS (2)
  - COUGH [None]
  - PLEURAL EFFUSION [None]
